FAERS Safety Report 7318813-5 (Version None)
Quarter: 2011Q1

REPORT INFORMATION
  Report Type: 
  Country: None (occurrence: None)
  Receive Date: 20110228
  Receipt Date: 20100831
  Transmission Date: 20110831
  Serious: No
  Sender: FDA-Public Use
  Company Number: A0870489A

PATIENT
  Age: 26 Year
  Sex: Female

DRUGS (2)
  1. IMITREX [Suspect]
     Dosage: 6MG AS DIRECTED
     Route: 058
     Dates: start: 20100626
  2. IMITREX [Suspect]
     Route: 058
     Dates: start: 20100626

REACTIONS (2)
  - DRUG ADMINISTRATION ERROR [None]
  - PRODUCT QUALITY ISSUE [None]
